FAERS Safety Report 4358668-4 (Version None)
Quarter: 2004Q2

REPORT INFORMATION
  Report Type: 
  Country: None (occurrence: None)
  Receive Date: 20040511
  Receipt Date: 20040426
  Transmission Date: 20050107
  Serious: Yes (Life-Threatening, Hospitalization, Disabling)
  Sender: FDA-Public Use
  Company Number: 231968K04USA

PATIENT
  Age: 66 Year
  Sex: Female
  Weight: 112 kg

DRUGS (7)
  1. REBIF [Suspect]
     Indication: MULTIPLE SCLEROSIS
     Dosage: SUBCUTANEOUS
     Route: 058
     Dates: start: 20030415
  2. BACLOFEN [Concomitant]
  3. GABAPENTIN [Concomitant]
  4. PAROXETINE HYDROCHLORIDE [Concomitant]
  5. PANTOPRAZOLE [Concomitant]
  6. OXYBUTYNIN [Concomitant]
  7. LORAZEPAM [Concomitant]

REACTIONS (2)
  - DEEP VEIN THROMBOSIS [None]
  - PULMONARY EMBOLISM [None]
